FAERS Safety Report 13624972 (Version 1)
Quarter: 2017Q2

REPORT INFORMATION
  Report Type: Spontaneous
  Country: US (occurrence: US)
  Receive Date: 20170608
  Receipt Date: 20170608
  Transmission Date: 20170830
  Serious: No
  Sender: FDA-Public Use
  Company Number: US-AUROBINDO-AUR-APU-2017-34360

PATIENT
  Sex: Male
  Weight: 76.2 kg

DRUGS (4)
  1. SIMVASTATIN. [Concomitant]
     Active Substance: SIMVASTATIN
     Indication: BLOOD CHOLESTEROL
     Dosage: 20 MG,EVERY EVENING
     Route: 048
  2. NORVASC [Concomitant]
     Active Substance: AMLODIPINE BESYLATE
     Indication: HYPERTENSION
     Dosage: 5 MG, ONCE A DAY
     Route: 048
     Dates: end: 2017
  3. SILDENAFIL CITRATE TABLETS 20MG [Suspect]
     Active Substance: SILDENAFIL CITRATE
     Indication: LIBIDO DISORDER
     Dosage: 20 MG, 3 TIMES A DAY
     Route: 048
     Dates: start: 2016, end: 2016
  4. DIOVAN [Concomitant]
     Active Substance: VALSARTAN
     Indication: HYPERTENSION
     Dosage: 320-25MG, TABLET, ONCE A DAY
     Route: 048

REACTIONS (2)
  - Headache [Recovered/Resolved]
  - Drug ineffective [Unknown]

NARRATIVE: CASE EVENT DATE: 2016
